FAERS Safety Report 14783602 (Version 2)
Quarter: 2019Q2

REPORT INFORMATION
  Report Type: Spontaneous
  Country: JP (occurrence: JP)
  Receive Date: 20180420
  Receipt Date: 20190402
  Transmission Date: 20190711
  Serious: Yes (Life-Threatening, Hospitalization, Other)
  Sender: FDA-Public Use
  Company Number: JP-LUNDBECK-DKLU2047444

PATIENT
  Age: 1 Year
  Sex: Male
  Weight: 12 kg

DRUGS (13)
  1. DEPAKENE [Suspect]
     Active Substance: VALPROIC ACID
     Route: 048
     Dates: start: 20170711, end: 20170727
  2. DEPAKENE [Suspect]
     Active Substance: VALPROIC ACID
     Route: 048
     Dates: start: 20170912
  3. SABRIL [Suspect]
     Active Substance: VIGABATRIN
     Route: 048
     Dates: start: 20170502, end: 20170529
  4. SABRIL [Suspect]
     Active Substance: VIGABATRIN
     Route: 048
     Dates: start: 20170412, end: 20170501
  5. SABRIL [Suspect]
     Active Substance: VIGABATRIN
     Route: 048
     Dates: start: 20170605, end: 20170608
  6. SABRIL [Suspect]
     Active Substance: VIGABATRIN
     Route: 048
     Dates: start: 20170619, end: 20170627
  7. DEPAKENE [Suspect]
     Active Substance: VALPROIC ACID
     Indication: INFANTILE SPASMS
     Route: 048
  8. SABRIL [Suspect]
     Active Substance: VIGABATRIN
     Route: 048
     Dates: start: 20170530, end: 20170604
  9. SABRIL [Suspect]
     Active Substance: VIGABATRIN
     Route: 048
     Dates: start: 20170628
  10. SABRIL [Suspect]
     Active Substance: VIGABATRIN
     Route: 048
     Dates: start: 20170609, end: 20170618
  11. L-CARTIN [Concomitant]
     Active Substance: LEVOCARNITINE HYDROCHLORIDE
     Indication: INFANTILE SPASMS
     Route: 065
  12. SABRIL [Suspect]
     Active Substance: VIGABATRIN
     Indication: INFANTILE SPASMS
     Dosage: 5 MONTHS, 17 DAYS
     Route: 048
     Dates: start: 20161026, end: 20170411
  13. DEPAKENE [Suspect]
     Active Substance: VALPROIC ACID
     Dosage: 1 MONTH 15 DAYS
     Route: 048
     Dates: start: 20170728, end: 20170911

REACTIONS (3)
  - Respiratory syncytial virus infection [Recovering/Resolving]
  - Status epilepticus [Recovering/Resolving]
  - Neutrophil count decreased [Recovered/Resolved]

NARRATIVE: CASE EVENT DATE: 20170417
